FAERS Safety Report 22103775 (Version 1)
Quarter: 2023Q1

REPORT INFORMATION
  Report Type: Spontaneous
  Country: US (occurrence: US)
  Receive Date: 20230316
  Receipt Date: 20230316
  Transmission Date: 20230418
  Serious: Yes (Other)
  Sender: FDA-Public Use
  Company Number: US-009507513-2303USA004390

PATIENT
  Sex: Female

DRUGS (2)
  1. KEYTRUDA [Suspect]
     Active Substance: PEMBROLIZUMAB
     Indication: Metastatic uterine cancer
     Dosage: UNK
     Dates: start: 20221026
  2. LENVATINIB MESYLATE [Suspect]
     Active Substance: LENVATINIB MESYLATE
     Indication: Metastatic uterine cancer
     Dosage: UNK

REACTIONS (9)
  - Malignant neoplasm progression [Unknown]
  - Feeling abnormal [Unknown]
  - Feeding disorder [Unknown]
  - Feeding disorder [Unknown]
  - Weight decreased [Unknown]
  - Abdominal pain upper [Unknown]
  - Abdominal pain upper [Unknown]
  - Fatigue [Unknown]
  - Fatigue [Unknown]

NARRATIVE: CASE EVENT DATE: 20220101
